FAERS Safety Report 4280948-1 (Version None)
Quarter: 2004Q1

REPORT INFORMATION
  Report Type: 
  Country: None (occurrence: None)
  Receive Date: 20040127
  Receipt Date: 20040106
  Transmission Date: 20041129
  Serious: Yes (Hospitalization)
  Sender: FDA-Public Use
  Company Number: 2003-BP-04868BR (0)

PATIENT
  Age: 87 Year
  Sex: Male

DRUGS (6)
  1. SPIRIVA [Suspect]
     Indication: CHRONIC OBSTRUCTIVE AIRWAYS DISEASE
     Dosage: 18 MCG (18 MCG, 1 CAPSULE/OAD),IH
     Dates: start: 20030621, end: 20030624
  2. ATROVENT [Suspect]
     Indication: EMPHYSEMA
     Dosage: RT, STRENGTH 5MG/ML
  3. PULMICORT [Concomitant]
  4. FLUIR (FORMOTEROL FUMARATE) (KAI) [Concomitant]
  5. SODIUM CHLORIDE 0.9% (LO) [Concomitant]
  6. BEROTEC (FENOTEROL HYDROBROMIDE) [Concomitant]

REACTIONS (2)
  - DRUG INEFFECTIVE [None]
  - PRURITUS GENERALISED [None]
